FAERS Safety Report 5720012-5 (Version None)
Quarter: 2008Q2

REPORT INFORMATION
  Report Type: 
  Country: None (occurrence: None)
  Receive Date: 20080424
  Receipt Date: 20080424
  Transmission Date: 20081010
  Serious: No
  Sender: FDA-Public Use
  Company Number: None

PATIENT
  Age: 64 Year
  Sex: Male
  Weight: 100.7 kg

DRUGS (1)
  1. VALSARTAN [Suspect]
     Dosage: 80 MG EVERY DAY PO
     Route: 048
     Dates: start: 20080225, end: 20080303

REACTIONS (2)
  - COUGH [None]
  - WHEEZING [None]
